FAERS Safety Report 7927785-1 (Version None)
Quarter: 2011Q4

REPORT INFORMATION
  Report Type: 
  Country: None (occurrence: None)
  Receive Date: 20111118
  Receipt Date: 20111110
  Transmission Date: 20120403
  Serious: Yes (Other)
  Sender: FDA-Public Use
  Company Number: CA-JNJFOC-20111105119

PATIENT
  Sex: Male
  Weight: 101 kg

DRUGS (2)
  1. CALCIUM [Concomitant]
  2. REMICADE [Suspect]
     Indication: ANKYLOSING SPONDYLITIS
     Route: 042
     Dates: start: 20060619

REACTIONS (1)
  - NASAL SEPTAL OPERATION [None]
